FAERS Safety Report 15767915 (Version 2)
Quarter: 2019Q1

REPORT INFORMATION
  Report Type: Report from Study
  Country: DE (occurrence: CA)
  Receive Date: 20181227
  Receipt Date: 20190119
  Transmission Date: 20190417
  Serious: Yes (Other)
  Sender: FDA-Public Use
  Company Number: CA-TEVA-2018-CA-991622

PATIENT
  Age: 23 Year
  Sex: Male

DRUGS (2)
  1. CABOZANTINIB [Suspect]
     Active Substance: CABOZANTINIB
     Indication: MEDULLARY THYROID CANCER
     Route: 065
  2. ZOLEDRONIC ACID [Suspect]
     Active Substance: ZOLEDRONIC ACID
     Indication: BONE CANCER METASTATIC
     Dosage: 4MG TWICE
     Route: 065

REACTIONS (7)
  - Vomiting [Unknown]
  - Microangiopathic haemolytic anaemia [Recovering/Resolving]
  - Chronic kidney disease [Not Recovered/Not Resolved]
  - Hypoproteinaemia [Unknown]
  - Hyperkalaemia [Unknown]
  - Thrombocytopenia [Recovering/Resolving]
  - Proteinuria [Unknown]
